FAERS Safety Report 10671528 (Version 1)
Quarter: 2014Q4

REPORT INFORMATION
  Report Type: Spontaneous
  Country: None (occurrence: None)
  Receive Date: 20141222
  Receipt Date: 20141222
  Transmission Date: 20150529
  Serious: No
  Sender: FDA-Public Use
  Company Number: None

PATIENT
  Age: 46 Year
  Sex: Male
  Weight: 83.92 kg

DRUGS (1)
  1. RABEPRAZOLE [Suspect]
     Active Substance: RABEPRAZOLE
     Indication: GASTROOESOPHAGEAL REFLUX DISEASE
     Dosage: TAKEN BY MOUTH
     Route: 048
     Dates: start: 20141215, end: 20141218

REACTIONS (4)
  - Hypoaesthesia [None]
  - Tremor [None]
  - Muscle twitching [None]
  - Salivary gland pain [None]

NARRATIVE: CASE EVENT DATE: 20141215
